FAERS Safety Report 14227520 (Version 1)
Quarter: 2017Q4

REPORT INFORMATION
  Report Type: Spontaneous
  Country: US (occurrence: US)
  Receive Date: 20171127
  Receipt Date: 20171127
  Transmission Date: 20180321
  Serious: Yes (Hospitalization)
  Sender: FDA-Public Use
  Company Number: US-PFIZER INC-2017505440

PATIENT
  Age: 72 Year
  Sex: Male
  Weight: 64.41 kg

DRUGS (2)
  1. SUTENT [Suspect]
     Active Substance: SUNITINIB MALATE
     Dosage: 25 MG, CYCLIC (TWO 12.5 MG PILLS, DAILY, 4 WEEKS, AND THEN IS OFF FOR 2 WEEKS)
     Route: 048
     Dates: start: 2017
  2. SUTENT [Suspect]
     Active Substance: SUNITINIB MALATE
     Indication: RENAL CELL CARCINOMA STAGE IV
     Dosage: 37.5 MG, UNK (12.5 MG CAPSULES AND TO TAKE THREE AT A TIME)
     Dates: start: 201609

REACTIONS (1)
  - Dehydration [Recovered/Resolved with Sequelae]
